FAERS Safety Report 22260691 (Version 2)
Quarter: 2023Q2

REPORT INFORMATION
  Report Type: Report from Study
  Country: CO (occurrence: CO)
  Receive Date: 20230427
  Receipt Date: 20230503
  Transmission Date: 20230722
  Serious: Yes (Hospitalization)
  Sender: FDA-Public Use
  Company Number: CO-EUROCEPT-EC20230053

PATIENT

DRUGS (3)
  1. PHEBURANE [Suspect]
     Active Substance: SODIUM PHENYLBUTYRATE
     Indication: Hyperammonaemia
     Dosage: 4 G EVERY 8 HOURS
     Route: 048
     Dates: start: 20220404
  2. CITRULLINE [Concomitant]
     Active Substance: CITRULLINE
     Indication: Product used for unknown indication
     Dosage: 1.2GR EVERY 8 HOURS
  3. LEVOCARNITINE [Concomitant]
     Active Substance: LEVOCARNITINE
     Indication: Product used for unknown indication
     Dosage: 3 CC EVERY 8 HOURS

REACTIONS (5)
  - Abdominal pain [Unknown]
  - Pyrexia [Unknown]
  - Back pain [Unknown]
  - Hypotension [Unknown]
  - Tachycardia [Unknown]

NARRATIVE: CASE EVENT DATE: 20230413
